FAERS Safety Report 9275832 (Version 1)
Quarter: 2013Q2

REPORT INFORMATION
  Report Type: Spontaneous
  Country: DE (occurrence: None)
  Receive Date: 20130430
  Receipt Date: 20130430
  Transmission Date: 20140414
  Serious: Yes (Hospitalization)
  Sender: FDA-Public Use
  Company Number: GER/GER/13/0029144

PATIENT
  Age: 55 Year
  Sex: Female

DRUGS (9)
  1. CITALOPRAM (CITALOPRAM) [Suspect]
     Indication: DEPRESSION
  2. CITALOPRAM (CITALOPRAM) [Suspect]
     Indication: APATHY
  3. VENLAFAXINE (VENLAFAXINE) [Suspect]
     Indication: DEPRESSION
     Route: 048
     Dates: start: 20130103, end: 20130106
  4. MIRTAZAPINE (MIRTAZAPINE) [Suspect]
     Indication: DEPRESSION
  5. TRAZODONE (TRAZODONE) [Suspect]
     Indication: INSOMNIA
     Route: 048
     Dates: start: 20130102, end: 20130104
  6. SEROQUEL (QUETIAPINE FUMARATE) [Suspect]
     Indication: DEPRESSION
  7. SEROQUEL (QUETIAPINE FUMARATE) [Suspect]
     Indication: APATHY
  8. DELIX (RAMIPRIL) [Concomitant]
  9. METFORMIN (METFORMIN) [Concomitant]

REACTIONS (7)
  - Restlessness [None]
  - Agitation [None]
  - Dizziness [None]
  - Gastrointestinal pain [None]
  - Piloerection [None]
  - Eye disorder [None]
  - Drug ineffective [None]
